FAERS Safety Report 12868460 (Version 1)
Quarter: 2016Q4

REPORT INFORMATION
  Report Type: Spontaneous
  Country: US (occurrence: US)
  Receive Date: 20161020
  Receipt Date: 20161020
  Transmission Date: 20170207
  Serious: No
  Sender: FDA-Public Use
  Company Number: US-ROCHE-1810302

PATIENT
  Sex: Male
  Weight: 79.45 kg

DRUGS (1)
  1. ALECENSA [Suspect]
     Active Substance: ALECTINIB HYDROCHLORIDE
     Indication: LUNG NEOPLASM MALIGNANT
     Dosage: TAKE 4 CAPS TWICE DAILY
     Route: 048
     Dates: start: 20141125

REACTIONS (2)
  - Skin discolouration [Unknown]
  - Fatigue [Unknown]
